FAERS Safety Report 17571026 (Version 1)
Quarter: 2020Q1

REPORT INFORMATION
  Report Type: Report from Study
  Country: FI (occurrence: FI)
  Receive Date: 20200323
  Receipt Date: 20200323
  Transmission Date: 20200409
  Serious: Yes (Hospitalization)
  Sender: FDA-Public Use
  Company Number: FI-ACCORD-176891

PATIENT
  Age: 70 Year
  Sex: Female

DRUGS (5)
  1. DOCETAXEL. [Suspect]
     Active Substance: DOCETAXEL
     Indication: APOCRINE BREAST CARCINOMA
  2. EPIRUBICIN [Concomitant]
     Active Substance: EPIRUBICIN
     Indication: APOCRINE BREAST CARCINOMA
  3. CYCLOPHOSPHAMIDE/CYCLOPHOSPHAMIDE MONOHYDRATE [Concomitant]
     Active Substance: CYCLOPHOSPHAMIDE
     Indication: APOCRINE BREAST CARCINOMA
  4. LIPEGFILGRASTIM [Suspect]
     Active Substance: LIPEGFILGRASTIM
     Indication: PROPHYLAXIS
  5. FLUOROURACIL. [Concomitant]
     Active Substance: FLUOROURACIL
     Indication: APOCRINE BREAST CARCINOMA

REACTIONS (1)
  - Vasculitis [Not Recovered/Not Resolved]

NARRATIVE: CASE EVENT DATE: 2018
